FAERS Safety Report 6016735-3 (Version None)
Quarter: 2008Q4

REPORT INFORMATION
  Report Type: 
  Country: None (occurrence: None)
  Receive Date: 20081222
  Receipt Date: 20081209
  Transmission Date: 20090506
  Serious: No
  Sender: FDA-Public Use
  Company Number: US-B.I. PHARMACEUTICALS,INC./RIDGEFIELD-2008-BP-17270BP

PATIENT
  Age: 37 Year
  Sex: Female
  Weight: 44 kg

DRUGS (3)
  1. MICARDIS [Suspect]
     Indication: HYPERTENSION
     Dosage: 80MG
  2. MICARDIS [Suspect]
     Indication: ANGIOGRAM ABNORMAL
  3. BYSTOLIC [Concomitant]
     Dosage: 10MG
     Dates: start: 20080918

REACTIONS (2)
  - DEPRESSION [None]
  - DISTURBANCE IN ATTENTION [None]
